FAERS Safety Report 16317259 (Version 1)
Quarter: 2019Q2

REPORT INFORMATION
  Report Type: Spontaneous
  Country: US (occurrence: US)
  Receive Date: 20190515
  Receipt Date: 20190515
  Transmission Date: 20190711
  Serious: No
  Sender: FDA-Public Use
  Company Number: US-SA-2019SA132406

PATIENT
  Age: 18 Year
  Sex: Male

DRUGS (1)
  1. ALDURAZYME [Suspect]
     Active Substance: LARONIDASE
     Route: 041

REACTIONS (1)
  - Product storage error [Unknown]
